FAERS Safety Report 4294467-X (Version None)
Quarter: 2004Q1

REPORT INFORMATION
  Report Type: 
  Country: None (occurrence: None)
  Receive Date: 20040211
  Receipt Date: 20040130
  Transmission Date: 20041129
  Serious: Yes (Other)
  Sender: FDA-Public Use
  Company Number: 2004003771

PATIENT
  Age: 38 Year
  Sex: Female
  Weight: 44 kg

DRUGS (11)
  1. UNASYN [Suspect]
     Indication: PROPHYLAXIS
     Dosage: 3 GRAM (BID), INTRAVENOUS
     Route: 042
     Dates: start: 20040107, end: 20040108
  2. ANAESTHETICS [Concomitant]
  3. CORTICOSTEROIDS [Concomitant]
  4. SOLITA-T1 INJECTION (GLUCOSE, SODIUM LACTATE, SODIUM CHLORIDE) [Concomitant]
  5. RINGER-LACTATE SOLUTION ^FRENSENIUS^ (SODIUM LACTATE, POTASSIUM CHLORI [Concomitant]
  6. HYDROXYZINE HCL [Concomitant]
  7. THIOPENTAL SODIUM [Concomitant]
  8. SUXAMETHONIUM CHLORIDE (SUXAMETHONIUM CHLORIDE) [Concomitant]
  9. NITROUS OXIDE (NITROUS OXIDE) [Concomitant]
  10. SEVOFLURANE [Concomitant]
  11. DICLOFENAC SODIUM [Concomitant]

REACTIONS (9)
  - BLISTER [None]
  - DERMATITIS [None]
  - DERMATITIS EXFOLIATIVE [None]
  - DYSKINESIA [None]
  - ERYTHEMA [None]
  - INSOMNIA [None]
  - OEDEMA [None]
  - PRURITUS GENERALISED [None]
  - PYREXIA [None]
